FAERS Safety Report 8219223-9 (Version None)
Quarter: 2012Q1

REPORT INFORMATION
  Report Type: 
  Country: None (occurrence: None)
  Receive Date: 20120319
  Receipt Date: 20120308
  Transmission Date: 20120608
  Serious: Yes (Hospitalization)
  Sender: FDA-Public Use
  Company Number: US-JNJFOC-20120306080

PATIENT
  Sex: Female
  Weight: 63.7 kg

DRUGS (22)
  1. LOVAZA [Concomitant]
  2. REMICADE [Suspect]
     Indication: INFLAMMATORY BOWEL DISEASE
     Route: 042
     Dates: start: 20071114
  3. PRED FORTE [Concomitant]
  4. FERROUS SULFATE TAB [Concomitant]
  5. OMEPRAZOLE [Concomitant]
  6. CEFZIL [Concomitant]
  7. AMITRIPTYLINE HCL [Concomitant]
  8. ZOFRAN [Concomitant]
  9. TRAMADOL HCL [Concomitant]
  10. LUXIQ [Concomitant]
  11. MESALAMINE [Concomitant]
     Route: 048
  12. CLOBETASOL PROPIONATE [Concomitant]
  13. MULTI-VITAMINS [Concomitant]
  14. MONTELUKAST SODIUM [Concomitant]
  15. FLAGYL [Concomitant]
  16. FOLIC ACID [Concomitant]
  17. BACTROBAN [Concomitant]
  18. FLUOCINONIDE [Concomitant]
  19. VITAMIN D [Concomitant]
  20. ALBUTEROL [Concomitant]
  21. SACCHAROMYCES BOULARDII [Concomitant]
  22. METHOTREXATE [Concomitant]

REACTIONS (3)
  - ILEAL STENOSIS [None]
  - ABDOMINAL WALL ABSCESS [None]
  - DEVICE RELATED INFECTION [None]
